FAERS Safety Report 8318293-7 (Version None)
Quarter: 2012Q1

REPORT INFORMATION
  Report Type: 
  Country: None (occurrence: None)
  Receive Date: 20120315
  Receipt Date: 20110321
  Transmission Date: 20120608
  Serious: Yes (Other)
  Sender: FDA-Public Use
  Company Number: PHHY2011US13546

PATIENT
  Age: 29 Year
  Sex: Male

DRUGS (1)
  1. GILENYA [Suspect]
     Indication: MULTIPLE SCLEROSIS
     Dosage: 0.5 MG DAILY, ORAL
     Route: 048
     Dates: start: 20110113, end: 20110216

REACTIONS (3)
  - PHOTOPHOBIA [None]
  - MACULAR OEDEMA [None]
  - VISION BLURRED [None]
